FAERS Safety Report 10373095 (Version 2)
Quarter: 2014Q3

REPORT INFORMATION
  Report Type: Spontaneous
  Country: US (occurrence: US)
  Receive Date: 20140808
  Receipt Date: 20140808
  Transmission Date: 20150326
  Serious: Yes (Hospitalization, Other)
  Sender: FDA-Public Use
  Company Number: US-BRISTOL-MYERS SQUIBB COMPANY-19989672

PATIENT
  Age: 82 Year
  Sex: Female

DRUGS (1)
  1. SPRYCEL [Suspect]
     Active Substance: DASATINIB
     Indication: CHRONIC MYELOID LEUKAEMIA
     Dosage: INTER 09-JAN-2014;RESUMED WITH 80MG ORALLY ON 24JAN14 UNTIL 28JAN-2014
     Route: 048
     Dates: start: 20131023

REACTIONS (3)
  - Hypertension [Recovering/Resolving]
  - Pleural effusion [Unknown]
  - Dyspnoea [Unknown]

NARRATIVE: CASE EVENT DATE: 201311
